FAERS Safety Report 7292780-5 (Version None)
Quarter: 2011Q1

REPORT INFORMATION
  Report Type: 
  Country: None (occurrence: None)
  Receive Date: 20110210
  Receipt Date: 20110210
  Transmission Date: 20110831
  Serious: Yes (Other)
  Sender: FDA-Public Use
  Company Number: None

PATIENT
  Age: 50 Year
  Sex: Female
  Weight: 77.3 kg

DRUGS (2)
  1. CELEBREX [Suspect]
     Indication: INTERVERTEBRAL DISCITIS
     Dosage: 1 DAILY
     Dates: start: 20110101, end: 20110209
  2. CELEBREX [Suspect]
     Indication: BACK PAIN
     Dosage: 1 DAILY
     Dates: start: 20110101, end: 20110209

REACTIONS (6)
  - CHEST PAIN [None]
  - DRY EYE [None]
  - IMPAIRED HEALING [None]
  - WOUND INFECTION [None]
  - GASTROINTESTINAL DISORDER [None]
  - RASH [None]
